FAERS Safety Report 7909851-X (Version None)
Quarter: 2011Q4

REPORT INFORMATION
  Report Type: 
  Country: None (occurrence: None)
  Receive Date: 20111111
  Receipt Date: 20111109
  Transmission Date: 20120403
  Serious: Yes (Hospitalization)
  Sender: FDA-Public Use
  Company Number: CH-MERCK-1111USA01138

PATIENT
  Age: 79 Year
  Sex: Female

DRUGS (9)
  1. INVANZ [Suspect]
     Indication: SEPSIS
     Route: 041
     Dates: start: 20111016, end: 20111018
  2. LAMICTAL [Concomitant]
     Route: 048
  3. ESCITALOPRAM [Concomitant]
     Route: 065
  4. NEO-MERCAZOLE TAB [Concomitant]
     Route: 048
  5. NEXIUM [Concomitant]
     Route: 048
  6. NITROGLYCERIN [Concomitant]
     Route: 065
  7. ROCEPHIN [Suspect]
     Indication: SEPSIS
     Route: 041
     Dates: start: 20111014, end: 20111015
  8. CIPROFLAXACIN [Suspect]
     Indication: SEPSIS
     Route: 048
     Dates: start: 20111014, end: 20111016
  9. METOPROLOL SUCCINATE [Concomitant]
     Route: 048

REACTIONS (3)
  - HEPATOCELLULAR INJURY [None]
  - CHOLECYSTITIS [None]
  - HYPERBILIRUBINAEMIA [None]
